FAERS Safety Report 8153241-4 (Version None)
Quarter: 2012Q1

REPORT INFORMATION
  Report Type: 
  Country: None (occurrence: None)
  Receive Date: 20120221
  Receipt Date: 20120208
  Transmission Date: 20120608
  Serious: Yes (Other)
  Sender: FDA-Public Use
  Company Number: US-UCBSA-051150

PATIENT
  Age: 42 Year
  Sex: Female
  Weight: 71.66 kg

DRUGS (8)
  1. CIMZIA [Suspect]
     Indication: RHEUMATOID ARTHRITIS
     Dosage: 1 SHOT EVERY WEEK
     Route: 058
     Dates: start: 20100901, end: 20110701
  2. TRAMADOL HCL [Concomitant]
     Indication: ARTHRITIS
     Dosage: 50 MG 2 TABS EVERY 4 HOURS
     Route: 048
     Dates: start: 20110701
  3. BACLOFEN [Concomitant]
     Indication: MUSCLE SPASMS
     Dosage: UPTO 40 MG AS NECESSARY
     Route: 048
     Dates: start: 20110301
  4. TRAMADOL HCL [Concomitant]
     Indication: TENDON PAIN
     Dosage: 50 MG 2 TABS EVERY 4 HOURS
     Route: 048
     Dates: start: 20110701
  5. AMRIX [Concomitant]
     Dosage: DAILY DOSE:15 MG
     Dates: start: 20101101, end: 20110301
  6. MELOXICAM [Concomitant]
     Indication: ARTHRITIS
     Route: 048
     Dates: start: 20110701
  7. LEVOTHYROXINE SODIUM [Concomitant]
     Indication: THYROID DISORDER
     Route: 048
     Dates: start: 20100601
  8. CYMBALTA [Concomitant]
     Indication: ANXIETY
     Route: 048
     Dates: start: 20110101

REACTIONS (2)
  - MOVEMENT DISORDER [None]
  - FIBROMYALGIA [None]
